FAERS Safety Report 9853710 (Version 1)
Quarter: 2014Q1

REPORT INFORMATION
  Report Type: Spontaneous
  Country: US (occurrence: US)
  Receive Date: 20140129
  Receipt Date: 20140129
  Transmission Date: 20141002
  Serious: Yes (Death, Hospitalization)
  Sender: FDA-Public Use
  Company Number: US-TEVA-458349USA

PATIENT
  Age: 47 Year
  Sex: Female
  Weight: 46.31 kg

DRUGS (6)
  1. FENTORA [Suspect]
     Indication: BREAKTHROUGH PAIN
     Route: 002
     Dates: start: 20130904
  2. MS CONTIN [Concomitant]
  3. HYDROCODONE [Concomitant]
  4. LORAZEPAM [Concomitant]
  5. LOMOTIL [Concomitant]
  6. REMERON [Concomitant]

REACTIONS (5)
  - Central nervous system lesion [Unknown]
  - Hepatic encephalopathy [Unknown]
  - Malaise [Unknown]
  - Hepatic failure [Unknown]
  - Death [Fatal]
